FAERS Safety Report 5151702-3 (Version None)
Quarter: 2006Q4

REPORT INFORMATION
  Report Type: 
  Country: None (occurrence: None)
  Receive Date: 20061109
  Receipt Date: 20061024
  Transmission Date: 20070319
  Serious: Yes (Death)
  Sender: FDA-Public Use
  Company Number: PAR_1050_2006

PATIENT
  Age: 39 Year
  Sex: 0

DRUGS (3)
  1. DIAZEPAM [Suspect]
     Dosage: DF
  2. DESIPRAMINE HCL [Suspect]
     Dosage: DF
  3. HYDROCODONE [Suspect]
     Dosage: DF

REACTIONS (3)
  - CARDIAC ARREST [None]
  - COMPLETED SUICIDE [None]
  - RESPIRATORY ARREST [None]
